FAERS Safety Report 5805349-3 (Version None)
Quarter: 2008Q3

REPORT INFORMATION
  Report Type: 
  Country: None (occurrence: None)
  Receive Date: 20080710
  Receipt Date: 20080709
  Transmission Date: 20090109
  Serious: Yes (Other)
  Sender: FDA-Public Use
  Company Number: US-RANBAXY-2008US-16014

PATIENT

DRUGS (1)
  1. AMOXICILLIN + CLAVULANATE POTASSIUM [Suspect]
     Indication: GINGIVAL INFECTION
     Dosage: 500 MG, UNK
     Route: 048
     Dates: start: 20080527

REACTIONS (1)
  - ERECTILE DYSFUNCTION [None]
